FAERS Safety Report 6085577-5 (Version None)
Quarter: 2009Q1

REPORT INFORMATION
  Report Type: 
  Country: None (occurrence: None)
  Receive Date: 20090217
  Receipt Date: 20090217
  Transmission Date: 20090719
  Serious: Yes (Life-Threatening, Hospitalization)
  Sender: FDA-Public Use
  Company Number: None

PATIENT
  Sex: Female
  Weight: 90.7194 kg

DRUGS (1)
  1. CYTOTEC [Suspect]
     Indication: ABORTION
     Dosage: ONE TIME PO
     Route: 048
     Dates: start: 20080928, end: 20080928

REACTIONS (9)
  - ASTHENIA [None]
  - DIZZINESS [None]
  - EYE ROLLING [None]
  - HAEMATEMESIS [None]
  - HYPOTENSION [None]
  - LOSS OF CONSCIOUSNESS [None]
  - PALLOR [None]
  - UTERINE HAEMORRHAGE [None]
  - VOMITING [None]
